FAERS Safety Report 10261458 (Version 1)
Quarter: 2014Q2

REPORT INFORMATION
  Report Type: Spontaneous
  Country: GB (occurrence: None)
  Receive Date: 20140623
  Receipt Date: 20140623
  Transmission Date: 20141212
  Serious: Yes (Other)
  Sender: FDA-Public Use
  Company Number: AUR-APL-2014-06504

PATIENT
  Sex: Male

DRUGS (1)
  1. METFORMIN (METFORMIN) UNKNOWN, UNKNOWN [Suspect]
     Indication: TYPE 2 DIABETES MELLITUS

REACTIONS (2)
  - Hypoglycaemia [None]
  - Diabetes mellitus inadequate control [None]
